FAERS Safety Report 6668322-1 (Version None)
Quarter: 2010Q2

REPORT INFORMATION
  Report Type: 
  Country: None (occurrence: None)
  Receive Date: 20100406
  Receipt Date: 20100326
  Transmission Date: 20101027
  Serious: Yes (Other)
  Sender: FDA-Public Use
  Company Number: FR-JNJFOC-20100308843

PATIENT
  Age: 58 Year
  Sex: Male

DRUGS (3)
  1. REMICADE [Suspect]
     Indication: COLITIS ULCERATIVE
     Route: 042
  2. REMICADE [Suspect]
     Route: 042
  3. IMUREL [Concomitant]
     Indication: COLITIS ULCERATIVE
     Dosage: DATE APPROXIMATE

REACTIONS (2)
  - CONGESTIVE CARDIOMYOPATHY [None]
  - DRUG EFFECT DECREASED [None]
